FAERS Safety Report 9231470 (Version 1)
Quarter: 2013Q2

REPORT INFORMATION
  Report Type: Spontaneous
  Country: US (occurrence: US)
  Receive Date: 20130415
  Receipt Date: 20130415
  Transmission Date: 20140414
  Serious: Yes (Hospitalization)
  Sender: FDA-Public Use
  Company Number: US-GLAXOSMITHKLINE-A1019269A

PATIENT
  Age: 19 Year
  Sex: Female

DRUGS (3)
  1. VENTOLIN HFA [Suspect]
     Indication: ASTHMA
     Dosage: 90MCG UNKNOWN
     Route: 055
     Dates: start: 201302, end: 20130403
  2. ADVAIR [Concomitant]
  3. SINGULAR [Concomitant]

REACTIONS (2)
  - Chest discomfort [Not Recovered/Not Resolved]
  - Drug ineffective [Not Recovered/Not Resolved]
